FAERS Safety Report 8032401-7 (Version None)
Quarter: 2011Q4

REPORT INFORMATION
  Report Type: 
  Country: None (occurrence: None)
  Receive Date: 20111202
  Receipt Date: 20111025
  Transmission Date: 20120403
  Serious: No
  Sender: FDA-Public Use
  Company Number: PHEH2011US07713

PATIENT
  Sex: Female

DRUGS (1)
  1. FANAPT [Suspect]
     Dosage: 1 MG, BID ; 6 MG, BID

REACTIONS (2)
  - MUSCLE SPASMS [None]
  - ORTHOSTATIC HYPOTENSION [None]
